FAERS Safety Report 4943970-5 (Version None)
Quarter: 2006Q1

REPORT INFORMATION
  Report Type: 
  Country: None (occurrence: None)
  Receive Date: 20060313
  Receipt Date: 20060313
  Transmission Date: 20060701
  Serious: Yes (Hospitalization)
  Sender: FDA-Public Use
  Company Number: None

PATIENT
  Sex: Male
  Weight: 59 kg

DRUGS (2)
  1. CETUXIMAB (400 MG/M2) [Suspect]
     Indication: OESOPHAGEAL CARCINOMA
     Dosage: 400 LOADING IV
     Route: 042
     Dates: start: 20051028
  2. CETUXIMAB (250 MG/M2) [Suspect]
     Indication: OESOPHAGEAL CARCINOMA
     Dosage: 250 WEEKLY IV
     Route: 042
     Dates: start: 20051115, end: 20051125

REACTIONS (9)
  - ANASTOMOTIC LEAK [None]
  - BARIUM SWALLOW ABNORMAL [None]
  - DISEASE PROGRESSION [None]
  - DUODENAL NEOPLASM [None]
  - DUODENAL STENOSIS [None]
  - INTESTINAL OBSTRUCTION [None]
  - NAUSEA [None]
  - STENT OCCLUSION [None]
  - VOMITING [None]
